FAERS Safety Report 17543057 (Version 2)
Quarter: 2020Q2

REPORT INFORMATION
  Report Type: Report from Study
  Country: None (occurrence: US)
  Receive Date: 20200316
  Receipt Date: 20200427
  Transmission Date: 20200713
  Serious: No
  Sender: FDA-Public Use
  Company Number: US-ABBVIE-20K-163-3316944-00

PATIENT
  Sex: Female

DRUGS (3)
  1. HUMIRA [Suspect]
     Active Substance: ADALIMUMAB
     Route: 058
  2. VITAMIN D3 [Concomitant]
     Active Substance: CHOLECALCIFEROL
     Indication: PRODUCT USED FOR UNKNOWN INDICATION
  3. HUMIRA [Suspect]
     Active Substance: ADALIMUMAB
     Indication: RHEUMATOID ARTHRITIS
     Route: 058
     Dates: start: 2000

REACTIONS (14)
  - Fatigue [Unknown]
  - Rash [Unknown]
  - Drug hypersensitivity [Unknown]
  - Musculoskeletal stiffness [Not Recovered/Not Resolved]
  - Vision blurred [Not Recovered/Not Resolved]
  - Pain [Not Recovered/Not Resolved]
  - Malaise [Unknown]
  - Osteoporosis [Unknown]
  - Deformity [Not Recovered/Not Resolved]
  - Constipation [Unknown]
  - Abdominal discomfort [Unknown]
  - Loss of personal independence in daily activities [Not Recovered/Not Resolved]
  - Cystitis [Not Recovered/Not Resolved]
  - Device breakage [Unknown]
